FAERS Safety Report 14692946 (Version 1)
Quarter: 2018Q1

REPORT INFORMATION
  Report Type: Spontaneous
  Country: FR (occurrence: FR)
  Receive Date: 20180329
  Receipt Date: 20180329
  Transmission Date: 20180509
  Serious: Yes (Other)
  Sender: FDA-Public Use
  Company Number: FR-MERCK KGAA-2044752

PATIENT
  Age: 63 Year
  Sex: Female

DRUGS (1)
  1. NOVOTHYROX [Suspect]
     Active Substance: LEVOTHYROXINE SODIUM
     Indication: HYPERTHYROIDISM
     Dates: start: 201707, end: 2017

REACTIONS (15)
  - Headache [Recovered/Resolved]
  - Loss of personal independence in daily activities [Recovering/Resolving]
  - Fatigue [Recovered/Resolved]
  - Impatience [Recovering/Resolving]
  - Arrhythmia [Recovered/Resolved]
  - Affective disorder [Recovering/Resolving]
  - Alopecia [Recovered/Resolved]
  - Nervousness [Recovering/Resolving]
  - Libido decreased [Recovering/Resolving]
  - Vision blurred [Recovering/Resolving]
  - Asthenia [Recovering/Resolving]
  - Balance disorder [Recovering/Resolving]
  - Tremor [Recovered/Resolved]
  - Dizziness [Recovered/Resolved]
  - Vertigo [Recovered/Resolved]

NARRATIVE: CASE EVENT DATE: 2017
